FAERS Safety Report 5798209-8 (Version None)
Quarter: 2008Q3

REPORT INFORMATION
  Report Type: 
  Country: None (occurrence: None)
  Receive Date: 20080702
  Receipt Date: 20080627
  Transmission Date: 20090109
  Serious: Yes (Life-Threatening, Hospitalization, Disabling, Other)
  Sender: FDA-Public Use
  Company Number: B0524985A

PATIENT
  Age: 26 Year
  Sex: Female

DRUGS (1)
  1. ZINACEF [Suspect]
     Indication: TONSILLITIS
     Dosage: 750MG THREE TIMES PER DAY
     Route: 042
     Dates: start: 20080508, end: 20080508

REACTIONS (7)
  - ANAPHYLACTIC REACTION [None]
  - CEREBRAL INFARCTION [None]
  - CONVULSION [None]
  - DYSPNOEA [None]
  - LOSS OF CONSCIOUSNESS [None]
  - NAUSEA [None]
  - OROPHARYNGEAL DISCOMFORT [None]
